FAERS Safety Report 26210142 (Version 1)
Quarter: 2025Q4

REPORT INFORMATION
  Report Type: Report from Study
  Country: EU (occurrence: EU)
  Receive Date: 20251229
  Receipt Date: 20251229
  Transmission Date: 20260117
  Serious: Yes (Death, Other)
  Sender: TEVA
  Company Number: EU-ROCHE-3452556

PATIENT
  Age: 52 Year
  Sex: Female
  Weight: 58 kg

DRUGS (67)
  1. CAPECITABINE [Suspect]
     Active Substance: CAPECITABINE
     Indication: HER2 positive breast cancer
     Dosage: 1300 MICROGRAM, BID
     Route: 048
     Dates: start: 20181115, end: 20181206
  2. CAPECITABINE [Suspect]
     Active Substance: CAPECITABINE
     Indication: HER2 positive breast cancer
     Dosage: 1500 MICROGRAM, BID, 86 DAYS
     Route: 065
     Dates: start: 20180821, end: 20180821
  3. CAPECITABINE [Suspect]
     Active Substance: CAPECITABINE
     Indication: HER2 positive breast cancer
     Dosage: 1800 MICROGRAM, BID, 86 DAYS
     Route: 065
     Dates: start: 20180529, end: 20180529
  4. CAPECITABINE [Suspect]
     Active Substance: CAPECITABINE
     Indication: HER2 positive breast cancer
     Dosage: 1500 UG, BID
     Route: 048
     Dates: start: 20180821, end: 20181114
  5. FERRIC CARBOXYMALTOSE [Concomitant]
     Active Substance: FERRIC CARBOXYMALTOSE
     Indication: Product used for unknown indication
     Route: 065
  6. METHOTREXATE [Suspect]
     Active Substance: METHOTREXATE
     Indication: HER2 positive breast cancer
     Dosage: Q3W, TREXALL, CAPSULE, INTRAVENOUS USE
     Route: 065
     Dates: start: 20201013, end: 20210103
  7. HERCEPTIN [Suspect]
     Active Substance: TRASTUZUMAB
     Indication: HER2 positive breast cancer
     Route: 042
     Dates: start: 20221214, end: 20221230
  8. ADRUCIL [Suspect]
     Active Substance: FLUOROURACIL
     Indication: HER2 positive breast cancer
     Dosage: UNK (3 WEEKS), MOST RECENT DOSE: 2021-01-03
     Route: 042
     Dates: start: 20201013
  9. ADRUCIL [Suspect]
     Active Substance: FLUOROURACIL
     Indication: HER2 positive breast cancer
     Dosage: UNK, QW, INTRAVENOUS USE
     Route: 065
     Dates: start: 20200310
  10. METOCLOPRAMIDE [Concomitant]
     Active Substance: METOCLOPRAMIDE
     Indication: Product used for unknown indication
     Dosage: ONGOING = NOT CHECKED
     Dates: start: 20221230, end: 20221230
  11. PREDNISONE [Concomitant]
     Active Substance: PREDNISONE
     Indication: Product used for unknown indication
  12. NAVELBINE [Suspect]
     Active Substance: VINORELBINE TARTRATE
     Indication: HER2 positive breast cancer
     Dosage: UNK, QW, MOST RECENT DOSE: 2020-10-01
     Route: 042
     Dates: start: 20200310, end: 20201001
  13. PYRIDOXINE [Concomitant]
     Active Substance: PYRIDOXINE
     Indication: Product used for unknown indication
     Dosage: ONGOING = NOT CHECKED
     Dates: end: 20221230
  14. ACETYLCYSTEINE [Concomitant]
     Active Substance: ACETYLCYSTEINE
     Indication: Product used for unknown indication
     Dosage: ONGOING = NOT CHECKED
     Route: 065
     Dates: start: 20221230
  15. ACETYLCYSTEINE [Concomitant]
     Active Substance: ACETYLCYSTEINE
     Indication: Product used for unknown indication
     Dosage: UNK (3 WEEKS), SUBCUTANEOUS USE
     Dates: start: 20190117
  16. TREXALL [Suspect]
     Active Substance: METHOTREXATE SODIUM
     Indication: HER2 positive breast cancer
     Dosage: MOST RECENT DOSE: 2021-01-03
     Route: 042
     Dates: start: 20201013, end: 20210103
  17. PREGABALIN [Concomitant]
     Active Substance: PREGABALIN
     Indication: Product used for unknown indication
     Dosage: ONGOING = NOT CHECKEDUNK
     Route: 065
     Dates: end: 20221230
  18. PREGABALIN [Concomitant]
     Active Substance: PREGABALIN
     Indication: Product used for unknown indication
     Dosage: UNK
     Route: 065
     Dates: start: 20221230
  19. KADCYLA [Suspect]
     Active Substance: ADO-TRASTUZUMAB EMTANSINE
     Indication: HER2 positive breast cancer
     Route: 042
     Dates: start: 20180417, end: 20180508
  20. KADCYLA [Suspect]
     Active Substance: ADO-TRASTUZUMAB EMTANSINE
     Indication: HER2 positive breast cancer
     Dosage: MOST RECENT DOSE: 2018-03-08, 2018-04-17
     Route: 042
     Dates: start: 20170614, end: 20180308
  21. PERJETA [Suspect]
     Active Substance: PERTUZUMAB
     Indication: HER2 positive breast cancer
     Dosage: MOST RECENT DOSE: 2020-02-18
     Route: 042
     Dates: start: 20190903, end: 20200218
  22. EFUDEX [Suspect]
     Active Substance: FLUOROURACIL
     Indication: HER2 positive breast cancer
     Dosage: UNK, Q3W(MOST RECENT DOSE: 2021-01-03)
     Route: 042
     Dates: start: 20201013, end: 20210103
  23. BUDESONIDE [Concomitant]
     Active Substance: BUDESONIDE
     Indication: Product used for unknown indication
     Dosage: ONGOING = NOT CHECKED
     Dates: start: 20221230, end: 20221230
  24. FAM-TRASTUZUMAB DERUXTECAN-NXKI [Suspect]
     Active Substance: FAM-TRASTUZUMAB DERUXTECAN-NXKI
     Indication: HER2 positive breast cancer
     Route: 042
     Dates: start: 20210714, end: 20221124
  25. FAM-TRASTUZUMAB DERUXTECAN-NXKI [Suspect]
     Active Substance: FAM-TRASTUZUMAB DERUXTECAN-NXKI
     Indication: HER2 positive breast cancer
     Dosage: 190.8 UG, Q3W (2018-03-18)
     Route: 065
     Dates: start: 20170614
  26. FAM-TRASTUZUMAB DERUXTECAN-NXKI [Suspect]
     Active Substance: FAM-TRASTUZUMAB DERUXTECAN-NXKI
     Indication: HER2 positive breast cancer
     Dosage: 190.8 MICROGRAM (2019-07-29)
     Route: 065
     Dates: start: 20190308, end: 20190308
  27. TAXOL [Suspect]
     Active Substance: PACLITAXEL
     Indication: HER2 positive breast cancer
     Dosage: MOST RECENT DOSE: 2020-02-11
     Route: 042
     Dates: start: 20190813, end: 20200211
  28. NALOXONE HYDROCHLORIDE\OXYCODONE HYDROCHLORIDE [Concomitant]
     Active Substance: NALOXONE HYDROCHLORIDE\OXYCODONE HYDROCHLORIDE
     Indication: Product used for unknown indication
     Dosage: ONGOING = NOT CHECKED
     Dates: start: 20170529, end: 20221230
  29. HERCEPTIN [Suspect]
     Active Substance: TRASTUZUMAB
     Indication: HER2 positive breast cancer
     Dosage: UNK (3 WEEKS), SUBCUTANEOUS USE
     Route: 065
     Dates: start: 20190117
  30. HERCEPTIN [Suspect]
     Active Substance: TRASTUZUMAB
     Indication: HER2 positive breast cancer
     Dosage: UNK (3 WEEKS), SUBCUTANEOUS USE
     Route: 065
     Dates: start: 20180529, end: 20190729
  31. HERCEPTIN [Suspect]
     Active Substance: TRASTUZUMAB
     Indication: HER2 positive breast cancer
     Dosage: UNK (3 WEEKS)
     Route: 065
     Dates: start: 2019, end: 20190729
  32. HERCEPTIN [Suspect]
     Active Substance: TRASTUZUMAB
     Indication: HER2 positive breast cancer
     Dosage: UNK, Q3W
     Route: 065
     Dates: start: 20180529, end: 20190117
  33. HERCEPTIN [Suspect]
     Active Substance: TRASTUZUMAB
     Indication: HER2 positive breast cancer
     Dosage: Q3W, SUBCUTANEOUS USE
     Route: 065
     Dates: start: 20180529
  34. ZOLEDRONIC ACID [Concomitant]
     Active Substance: ZOLEDRONIC ACID
     Indication: Product used for unknown indication
     Dosage: ONGOING = NOT CHECKED
     Dates: start: 20170509, end: 20221230
  35. CYTOXAN [Suspect]
     Active Substance: CYCLOPHOSPHAMIDE
     Indication: HER2 positive breast cancer
     Dosage: MOST RECENT DOSE: 2021-01-03
     Route: 042
     Dates: start: 20201013, end: 20210103
  36. LOPERAMIDE [Concomitant]
     Active Substance: LOPERAMIDE
     Indication: Product used for unknown indication
     Dosage: ONGOING = NOT CHECKED
     Dates: start: 20221230, end: 20221230
  37. TYKERB [Suspect]
     Active Substance: LAPATINIB DITOSYLATE
     Indication: HER2 positive breast cancer
     Dosage: MOST RECENT DOSE: 2019-07-23
     Route: 048
     Dates: start: 20190207, end: 20190723
  38. CALCIUM CARBONATE [Concomitant]
     Active Substance: CALCIUM CARBONATE
     Indication: Product used for unknown indication
     Dosage: ONGOING = NOT CHECKEDUNK
     Route: 065
     Dates: end: 20221230
  39. CALCIUM CARBONATE [Concomitant]
     Active Substance: CALCIUM CARBONATE
     Indication: Product used for unknown indication
     Dosage: UNK
     Route: 065
     Dates: start: 20221230
  40. CALCIUM CARBONATE [Concomitant]
     Active Substance: CALCIUM CARBONATE
     Indication: Product used for unknown indication
     Dosage: ONGOING
     Route: 065
     Dates: start: 20171129, end: 20221230
  41. CETIRIZINE [Concomitant]
     Active Substance: CETIRIZINE HYDROCHLORIDE
     Indication: Product used for unknown indication
     Dosage: ONGOING = NOT CHECKED
     Dates: start: 20221230, end: 20221230
  42. AZITHROMYCIN [Concomitant]
     Active Substance: AZITHROMYCIN
     Indication: Product used for unknown indication
  43. AZITHROMYCIN [Concomitant]
     Active Substance: AZITHROMYCIN
     Indication: Product used for unknown indication
     Dosage: UNK
     Route: 065
  44. GEMCITABINE [Suspect]
     Active Substance: GEMCITABINE
     Indication: HER2 positive breast cancer
     Dosage: UNK, Q3W(MOST RECENT DOSE:2022-12-30), GEMZAR, INTRAVENOUS INFUSION, INTRAVENOUS USE
     Route: 065
     Dates: start: 20221214, end: 20221230
  45. GEMCITABINE [Suspect]
     Active Substance: GEMCITABINE
     Indication: HER2 positive breast cancer
     Dosage: UNK, INTRAVENOUS INFUSION, INTRAVENOUS USE
     Route: 065
     Dates: start: 20221230
  46. OXYCODONE [Concomitant]
     Active Substance: OXYCODONE
     Indication: Product used for unknown indication
     Dosage: ONGOING = NOT CHECKED??5 MG
     Dates: start: 20221230, end: 20221230
  47. OXYCODONE [Concomitant]
     Active Substance: OXYCODONE
     Indication: Product used for unknown indication
     Dosage: ONGOING = NOT CHECKEDUNK
     Route: 065
     Dates: start: 20170529, end: 20221230
  48. BISOPROLOL [Concomitant]
     Active Substance: BISOPROLOL
     Indication: Product used for unknown indication
     Dosage: UNK
     Route: 065
     Dates: start: 20221230
  49. BISOPROLOL [Concomitant]
     Active Substance: BISOPROLOL
     Indication: Product used for unknown indication
     Dosage: ONGOING = NOT CHECKED
     Route: 065
     Dates: start: 20171129, end: 20221230
  50. BACIDERMA [Concomitant]
     Indication: Product used for unknown indication
     Dosage: 10 G?ONGOING = NOT CHECKED
     Dates: start: 20221230, end: 20221230
  51. XELODA [Suspect]
     Active Substance: CAPECITABINE
     Indication: Product used for unknown indication
     Dosage: 1300 MILLIGRAM, QD
     Route: 048
     Dates: start: 20181115, end: 20181206
  52. XELODA [Suspect]
     Active Substance: CAPECITABINE
     Indication: Product used for unknown indication
     Dosage: 1800 MILLIGRAM, QD
     Route: 048
     Dates: start: 20180529, end: 20180820
  53. XELODA [Suspect]
     Active Substance: CAPECITABINE
     Indication: Product used for unknown indication
     Dosage: 1500 MILLIGRAM, QD
     Route: 048
     Dates: start: 20180821, end: 20181114
  54. DOCETAXEL [Suspect]
     Active Substance: DOCETAXEL
     Indication: HER2 positive breast cancer
     Dosage: UNK (3 WEEKS), TAXOTERE SOLUTION FOR INJECTION, INTRAVENOUS INFUSION 20MG/2ML, INTRAVENOUS USE
     Route: 065
     Dates: start: 20210104, end: 20210629
  55. CARBOPLATIN [Suspect]
     Active Substance: CARBOPLATIN
     Indication: HER2 positive breast cancer
     Dosage: Q3W, PARAPLATIN
     Route: 042
     Dates: start: 20221214, end: 20221230
  56. IVABRADINE [Concomitant]
     Active Substance: IVABRADINE
     Indication: Ejection fraction decreased
     Dates: start: 20180308, end: 20221230
  57. IPRATROPIUM BROMIDE [Concomitant]
     Active Substance: IPRATROPIUM BROMIDE
     Indication: Product used for unknown indication
     Dosage: ONGOING = NOT CHECKED, 1.00 AMPULEUNK
     Dates: start: 20221230, end: 20221230
  58. CHOLECALCIFEROL [Concomitant]
     Active Substance: CHOLECALCIFEROL
     Indication: Product used for unknown indication
     Dosage: 400 IU (400 INTERNATIONAL UNIT)
     Dates: start: 20221230, end: 20221230
  59. RAMIPRIL [Concomitant]
     Active Substance: RAMIPRIL
     Indication: Ejection fraction decreased
     Dosage: ONGOING = NOT CHECKED
     Dates: start: 20180308, end: 20221230
  60. LEVOCETIRIZINE [Concomitant]
     Active Substance: LEVOCETIRIZINE
     Indication: Product used for unknown indication
  61. TAXOTERE [Suspect]
     Active Substance: DOCETAXEL
     Indication: HER2 positive breast cancer
     Dosage: MOST RECENT DOSE: 2021-06-29
     Route: 042
     Dates: start: 20210104, end: 20210629
  62. FILGRASTIM [Suspect]
     Active Substance: FILGRASTIM
     Indication: Product used for unknown indication
     Dosage: UNK
     Route: 065
     Dates: start: 20221230, end: 20221230
  63. FLUOROPLEX [Suspect]
     Active Substance: FLUOROURACIL
     Indication: HER2 positive breast cancer
     Dosage: MOST RECENT DOSE: 2021-01-03
     Route: 042
     Dates: start: 20201013, end: 20210103
  64. NALOXONE [Concomitant]
     Active Substance: NALOXONE
     Indication: Product used for unknown indication
     Dosage: ONGOING = NOT CHECKED
     Dates: start: 20221230, end: 20221230
  65. PARAPLATIN [Suspect]
     Active Substance: CARBOPLATIN
     Indication: HER2 positive breast cancer
     Dosage: MOST RECENT DOSE: 2022-12-30
     Route: 042
     Dates: start: 20221214, end: 20221230
  66. PACLITAXEL [Suspect]
     Active Substance: PACLITAXEL
     Indication: HER2 positive breast cancer
     Dosage: UNK, Q3W (MOST RECENT DOSE: 2021-01-03), INTRAVENOUS USE
     Route: 065
     Dates: start: 20201013, end: 20210103
  67. PACLITAXEL [Suspect]
     Active Substance: PACLITAXEL
     Indication: HER2 positive breast cancer
     Dosage: UNK, Q3W (MOST RECENT DOSE: 2022-12-30), INTRAVENOUS USE
     Route: 065
     Dates: start: 20221214

REACTIONS (4)
  - Febrile neutropenia [Fatal]
  - Pancytopenia [Fatal]
  - Pyrexia [Fatal]
  - Pneumonia [Fatal]

NARRATIVE: CASE EVENT DATE: 20221227
